FAERS Safety Report 10684732 (Version 5)
Quarter: 2016Q1

REPORT INFORMATION
  Report Type: Spontaneous
  Country: US (occurrence: US)
  Receive Date: 20141231
  Receipt Date: 20160322
  Transmission Date: 20160525
  Serious: Yes (Hospitalization, Other)
  Sender: FDA-Public Use
  Company Number: US-BAYER-2014-190754

PATIENT
  Age: 23 Year
  Sex: Female
  Weight: 72.56 kg

DRUGS (4)
  1. MIRENA [Suspect]
     Active Substance: LEVONORGESTREL
     Indication: CONTRACEPTION
     Dosage: 20 MCG/24HR, CONT
     Route: 015
     Dates: start: 20100623, end: 20130320
  2. MISOPROSTOL. [Concomitant]
     Active Substance: MISOPROSTOL
  3. MIFEPREX [Concomitant]
     Active Substance: MIFEPRISTONE
  4. MIFEPRISTONE [Concomitant]
     Active Substance: MIFEPRISTONE

REACTIONS (12)
  - Pregnancy with contraceptive device [None]
  - Device issue [None]
  - Procedural pain [None]
  - Drug ineffective [None]
  - Medical device discomfort [None]
  - Emotional distress [None]
  - Depression [None]
  - Uterine perforation [None]
  - Pain [None]
  - Injury [None]
  - Device use error [None]
  - Abortion [None]

NARRATIVE: CASE EVENT DATE: 201212
